FAERS Safety Report 8220207-5 (Version None)
Quarter: 2012Q1

REPORT INFORMATION
  Report Type: 
  Country: None (occurrence: None)
  Receive Date: 20120320
  Receipt Date: 20120312
  Transmission Date: 20120608
  Serious: Yes (Hospitalization, Other)
  Sender: FDA-Public Use
  Company Number: JP-BAYER-2012-025051

PATIENT
  Age: 69 Year
  Sex: Male
  Weight: 64 kg

DRUGS (1)
  1. NEXAVAR [Suspect]
     Indication: RENAL CELL CARCINOMA RECURRENT
     Dosage: DAILY DOSE 400 MG
     Route: 048
     Dates: start: 20090707, end: 20090812

REACTIONS (5)
  - FEMUR FRACTURE [None]
  - HYPERTENSION [None]
  - THROMBOSIS [None]
  - RASH [None]
  - GASTROINTESTINAL HAEMORRHAGE [None]
